FAERS Safety Report 11722754 (Version 2)
Quarter: 2015Q4

REPORT INFORMATION
  Report Type: Spontaneous
  Country: DE (occurrence: DE)
  Receive Date: 20151111
  Receipt Date: 20151222
  Transmission Date: 20160304
  Serious: Yes (Other)
  Sender: FDA-Public Use
  Company Number: DE-UCBSA-2015035607

PATIENT
  Sex: Female
  Weight: 65 kg

DRUGS (2)
  1. CIMZIA [Suspect]
     Active Substance: CERTOLIZUMAB PEGOL
     Dosage: UNK DOSE, INCLUDING APPLICATION OF LOADING DOSE REGIMEN
     Dates: start: 201509
  2. CIMZIA [Suspect]
     Active Substance: CERTOLIZUMAB PEGOL
     Indication: ANKYLOSING SPONDYLITIS
     Dosage: 200 MG, EV 2 WEEKS(QOW)
     Route: 058
     Dates: start: 201310, end: 201412

REACTIONS (4)
  - Ankylosing spondylitis [Unknown]
  - Abortion spontaneous [Recovered/Resolved with Sequelae]
  - Drug ineffective [Unknown]
  - Pregnancy [Unknown]

NARRATIVE: CASE EVENT DATE: 2015
